FAERS Safety Report 6194941-5 (Version None)
Quarter: 2009Q2

REPORT INFORMATION
  Report Type: 
  Country: None (occurrence: None)
  Receive Date: 20090515
  Receipt Date: 20090515
  Transmission Date: 20091009
  Serious: Yes (Life-Threatening, Hospitalization)
  Sender: FDA-Public Use
  Company Number: None

PATIENT
  Sex: Female
  Weight: 58.9676 kg

DRUGS (1)
  1. SERTRALINE [Suspect]
     Indication: POSTPARTUM DEPRESSION
     Dosage: 50NG DAILY PO
     Route: 048
     Dates: start: 20080501, end: 20090112

REACTIONS (5)
  - CARBON MONOXIDE POISONING [None]
  - DRUG EFFECT DECREASED [None]
  - DRUG INTERACTION [None]
  - SUICIDE ATTEMPT [None]
  - WITHDRAWAL SYNDROME [None]
